FAERS Safety Report 11694610 (Version 1)
Quarter: 2015Q4

REPORT INFORMATION
  Report Type: Spontaneous
  Country: US (occurrence: US)
  Receive Date: 20151103
  Receipt Date: 20151103
  Transmission Date: 20160304
  Serious: No
  Sender: FDA-Public Use
  Company Number: US-BAYER-2015-455770

PATIENT
  Age: 29 Year
  Sex: Female
  Weight: 61.22 kg

DRUGS (2)
  1. CLARITIN-D 24 HOUR [Suspect]
     Active Substance: LORATADINE\PSEUDOEPHEDRINE SULFATE
     Indication: NASOPHARYNGITIS
     Dosage: 1 DF, UNK
     Dates: start: 20151027, end: 20151027
  2. CLARITIN-D 24 HOUR [Suspect]
     Active Substance: LORATADINE\PSEUDOEPHEDRINE SULFATE
     Indication: NASOPHARYNGITIS
     Dosage: 1 DF, UNK
     Dates: start: 20151028, end: 20151028

REACTIONS (6)
  - Maternal exposure during pregnancy [Unknown]
  - Insomnia [None]
  - Somnolence [None]
  - Product use issue [Unknown]
  - Drug ineffective for unapproved indication [None]
  - Feeling abnormal [None]

NARRATIVE: CASE EVENT DATE: 20151027
